FAERS Safety Report 25070255 (Version 1)
Quarter: 2025Q1

REPORT INFORMATION
  Report Type: Spontaneous
  Country: US (occurrence: None)
  Receive Date: 20250312
  Receipt Date: 20250312
  Transmission Date: 20250409
  Serious: Yes (Other)
  Sender: FDA-CTU
  Company Number: None

PATIENT
  Age: 70 Year
  Sex: Female
  Weight: 112.94 kg

DRUGS (13)
  1. WEGOVY [Suspect]
     Active Substance: SEMAGLUTIDE
     Dosage: FREQUENCY : WEEKLY;?
     Dates: start: 20241001, end: 20241220
  2. LOSARTAN [Concomitant]
     Active Substance: LOSARTAN
  3. AMLODIPINE [Concomitant]
     Active Substance: AMLODIPINE BESYLATE
  4. ASPIRIN [Concomitant]
     Active Substance: ASPIRIN
  5. OMEPRAZOLE [Concomitant]
     Active Substance: OMEPRAZOLE
  6. VITAMINS [Concomitant]
     Active Substance: VITAMINS
  7. VITAMIN D3 [Concomitant]
     Active Substance: CHOLECALCIFEROL
  8. MAGNESIUM [Concomitant]
     Active Substance: MAGNESIUM
  9. ZINC [Concomitant]
     Active Substance: ZINC
  10. FERROUS SULFATE [Concomitant]
     Active Substance: FERROUS SULFATE
  11. VITAMIN A [Concomitant]
     Active Substance: VITAMIN A
  12. ELBERBERRY [Concomitant]
  13. ESTER-C [Concomitant]

REACTIONS (3)
  - Eructation [None]
  - Abdominal pain [None]
  - Weight decreased [None]

NARRATIVE: CASE EVENT DATE: 20241101
